FAERS Safety Report 7957150-2 (Version None)
Quarter: 2011Q4

REPORT INFORMATION
  Report Type: 
  Country: None (occurrence: None)
  Receive Date: 20111205
  Receipt Date: 20111202
  Transmission Date: 20120403
  Serious: Yes (Other)
  Sender: FDA-Public Use
  Company Number: PL-BAYER-2011-116074

PATIENT
  Sex: Female
  Weight: 50 kg

DRUGS (1)
  1. ULTRAVIST 150 [Suspect]
     Dosage: UNK
     Route: 042

REACTIONS (1)
  - DERMATITIS BULLOUS [None]
